FAERS Safety Report 15339807 (Version 1)
Quarter: 2018Q3

REPORT INFORMATION
  Report Type: Report from Study
  Country: US (occurrence: US)
  Receive Date: 20180831
  Receipt Date: 20180831
  Transmission Date: 20181010
  Serious: Yes (Hospitalization, Other)
  Sender: FDA-Public Use
  Company Number: US-BAYER-2018-161973

PATIENT
  Age: 83 Year
  Sex: Male
  Weight: 89.8 kg

DRUGS (2)
  1. ADEMPAS [Suspect]
     Active Substance: RIOCIGUAT
     Indication: PULMONARY ARTERIAL HYPERTENSION
     Dosage: 1.0 MG, TID
     Route: 048
     Dates: start: 20180803
  2. APIXABAN [Concomitant]
     Active Substance: APIXABAN
     Dosage: UNK

REACTIONS (5)
  - Device related infection [Unknown]
  - Blood glucose decreased [Unknown]
  - Loss of consciousness [None]
  - Hypoglycaemic seizure [Unknown]
  - Dyspnoea exertional [None]

NARRATIVE: CASE EVENT DATE: 201808
